FAERS Safety Report 23225654 (Version 1)
Quarter: 2023Q4

REPORT INFORMATION
  Report Type: Spontaneous
  Country: PT (occurrence: None)
  Receive Date: 20231124
  Receipt Date: 20231124
  Transmission Date: 20240109
  Serious: Yes (Other)
  Sender: FDA-Public Use
  Company Number: 2023A254052

PATIENT
  Age: 46 Year
  Sex: Female

DRUGS (4)
  1. DURVALUMAB [Suspect]
     Active Substance: DURVALUMAB
     Indication: Squamous cell carcinoma
     Dates: start: 201912
  2. DURVALUMAB [Suspect]
     Active Substance: DURVALUMAB
     Indication: Squamous cell carcinoma
     Dosage: 1500 MG EVERY 4 WEEKS COMPLETED A TOTAL OF 5 CYCLES
     Dates: start: 202003
  3. ETOPOSIDE [Suspect]
     Active Substance: ETOPOSIDE
     Indication: Squamous cell carcinoma
     Dosage: TOTAL OF 5 CYCLES
     Dates: start: 201912
  4. CARBOPLATIN [Suspect]
     Active Substance: CARBOPLATIN
     Indication: Squamous cell carcinoma
     Dosage: TOTAL OF 5 CYCLES
     Dates: start: 201912

REACTIONS (2)
  - Drug ineffective [Unknown]
  - Hypothyroidism [Unknown]
